FAERS Safety Report 4833422-5 (Version None)
Quarter: 2005Q4

REPORT INFORMATION
  Report Type: 
  Country: None (occurrence: None)
  Receive Date: 20051117
  Receipt Date: 20051028
  Transmission Date: 20060501
  Serious: Yes (Death)
  Sender: FDA-Public Use
  Company Number: DE_050215183

PATIENT
  Age: 7 Year
  Sex: Female
  Weight: 28 kg

DRUGS (1)
  1. ZYPREXA [Suspect]
     Dosage: 5 MG

REACTIONS (3)
  - INJURY ASPHYXIATION [None]
  - VICTIM OF HOMICIDE [None]
  - WRONG DRUG ADMINISTERED [None]
